FAERS Safety Report 20095241 (Version 1)
Quarter: 2021Q4

REPORT INFORMATION
  Report Type: Spontaneous
  Country: LV (occurrence: LV)
  Receive Date: 20211122
  Receipt Date: 20211122
  Transmission Date: 20220304
  Serious: Yes (Other)
  Sender: FDA-Public Use
  Company Number: LV-VIIV HEALTHCARE LIMITED-LV2021EME234929

PATIENT
  Sex: Female

DRUGS (2)
  1. ABACAVIR SULFATE\DOLUTEGRAVIR SODIUM\LAMIVUDINE [Suspect]
     Active Substance: ABACAVIR SULFATE\DOLUTEGRAVIR SODIUM\LAMIVUDINE
     Indication: HIV infection CDC category C
     Dosage: UNK
     Dates: start: 2017, end: 202101
  2. DOLUTEGRAVIR [Suspect]
     Active Substance: DOLUTEGRAVIR
     Indication: HIV infection CDC category C
     Dosage: UNK
     Dates: start: 2017, end: 201805

REACTIONS (15)
  - Cerebral infarction [Unknown]
  - Cerebral ischaemia [Unknown]
  - Vestibular ataxia [Unknown]
  - Encephalopathy [Unknown]
  - Polyneuropathy [Unknown]
  - Arteriosclerosis [Unknown]
  - Cognitive disorder [Unknown]
  - Cholelithiasis [Unknown]
  - Spinal osteoarthritis [Unknown]
  - Intervertebral disc protrusion [Unknown]
  - Back pain [Unknown]
  - Viral load abnormal [Recovered/Resolved]
  - Overweight [Unknown]
  - Dyslipidaemia [Unknown]
  - Treatment noncompliance [Unknown]

NARRATIVE: CASE EVENT DATE: 20190801
